FAERS Safety Report 8775426 (Version 1)
Quarter: 2012Q4

REPORT INFORMATION
  Report Type: 
  Country: JP (occurrence: JP)
  Receive Date: 20120910
  Receipt Date: 20120910
  Transmission Date: 20130627
  Serious: Yes (Hospitalization)
  Sender: FDA-Public Use
  Company Number: JP-TEVA-2011005534

PATIENT
  Age: 72 Year
  Sex: Male
  Weight: 53 kg

DRUGS (7)
  1. BENDAMUSTINE HCL [Suspect]
     Indication: B-CELL LYMPHOMA
     Dosage: 90 mg/m2 Daily;
     Route: 042
     Dates: start: 20110816, end: 20110817
  2. BENDAMUSTINE HCL [Suspect]
     Dosage: 90 mg/m2 Daily;
     Route: 042
     Dates: start: 20110913, end: 20110914
  3. BENDAMUSTINE HCL [Suspect]
     Route: 042
     Dates: start: 20111011
  4. LAFUTIDINE [Concomitant]
     Indication: GASTRITIS
     Dates: start: 20100805, end: 20120424
  5. POLAPREZINC [Concomitant]
     Indication: GASTRITIS
     Dosage: 150 Milligram Daily;
     Dates: start: 20100805, end: 20120424
  6. ALLOPURINOL [Concomitant]
     Indication: HYPERURICAEMIA
     Dates: start: 20100805, end: 20120424
  7. MAGNESIUM OXIDE [Concomitant]
     Indication: CONSTIPATION
     Dosage: 1320 Milligram Daily;
     Dates: start: 20100810

REACTIONS (4)
  - Renal disorder [Recovered/Resolved]
  - Rash [Recovering/Resolving]
  - Erythema [Recovering/Resolving]
  - Pyrexia [Recovered/Resolved]
